FAERS Safety Report 21800839 (Version 1)
Quarter: 2022Q4

REPORT INFORMATION
  Report Type: Spontaneous
  Country: FR (occurrence: FR)
  Receive Date: 20221230
  Receipt Date: 20221230
  Transmission Date: 20230113
  Serious: Yes (Other)
  Sender: FDA-Public Use
  Company Number: None

PATIENT
  Age: 32 Year
  Sex: Female
  Weight: 63 kg

DRUGS (5)
  1. ENHERTU [Suspect]
     Active Substance: FAM-TRASTUZUMAB DERUXTECAN-NXKI
     Indication: Breast cancer metastatic
     Dosage: 340 MG, ONCE EVERY 3 WK
     Route: 042
     Dates: start: 20220822, end: 20221114
  2. ENHERTU [Suspect]
     Active Substance: FAM-TRASTUZUMAB DERUXTECAN-NXKI
     Dosage: UNK
     Route: 042
     Dates: start: 2022
  3. APREPITANT [Suspect]
     Active Substance: APREPITANT
     Indication: Breast cancer metastatic
     Route: 048
     Dates: start: 20220822, end: 20221114
  4. ONDANSETRON [Suspect]
     Active Substance: ONDANSETRON
     Indication: Prophylaxis of nausea and vomiting
     Dosage: UNK
     Route: 048
     Dates: start: 20220822, end: 20221114
  5. PREDNISOLONE [Concomitant]
     Active Substance: PREDNISOLONE
     Indication: Product used for unknown indication
     Dosage: 40 MG, ONCE EVERY 3 WK
     Route: 065
     Dates: end: 20221114

REACTIONS (1)
  - Punctate keratitis [Unknown]

NARRATIVE: CASE EVENT DATE: 20221121
